FAERS Safety Report 6597110-X (Version None)
Quarter: 2010Q1

REPORT INFORMATION
  Report Type: 
  Country: None (occurrence: None)
  Receive Date: 20100223
  Receipt Date: 20100213
  Transmission Date: 20100710
  Serious: Yes (Hospitalization)
  Sender: FDA-Public Use
  Company Number: IT-ABBOTT-10P-083-0626172-01

PATIENT
  Sex: Female

DRUGS (2)
  1. HUMIRA [Suspect]
     Indication: CROHN'S DISEASE
     Route: 058
     Dates: start: 20080712, end: 20100109
  2. METHOTREXATE [Concomitant]
     Indication: CROHN'S DISEASE

REACTIONS (1)
  - CROHN'S DISEASE [None]
